FAERS Safety Report 18623830 (Version 3)
Quarter: 2021Q4

REPORT INFORMATION
  Report Type: Report from Study
  Country: US (occurrence: US)
  Receive Date: 20201216
  Receipt Date: 20211214
  Transmission Date: 20220303
  Serious: Yes (Hospitalization, Other)
  Sender: FDA-Public Use
  Company Number: US-SHIRE-US201945286

PATIENT
  Sex: Male
  Weight: 66.667 kg

DRUGS (21)
  1. ICATIBANT [Suspect]
     Active Substance: ICATIBANT ACETATE
     Indication: Angioedema
     Dosage: 30 MILLIGRAM, PRN
     Route: 058
     Dates: start: 20190307
  2. ICATIBANT [Suspect]
     Active Substance: ICATIBANT ACETATE
     Indication: Angioedema
     Dosage: 30 MILLIGRAM, PRN
     Route: 058
     Dates: start: 20190307
  3. ICATIBANT [Suspect]
     Active Substance: ICATIBANT ACETATE
     Indication: Immune system disorder
  4. ICATIBANT [Suspect]
     Active Substance: ICATIBANT ACETATE
     Indication: Immune system disorder
  5. TAKHZYRO [Suspect]
     Active Substance: LANADELUMAB-FLYO
     Indication: Angioedema
     Dosage: 300 MILLIGRAM, 1X/2WKS
     Route: 058
     Dates: start: 20190215
  6. TAKHZYRO [Suspect]
     Active Substance: LANADELUMAB-FLYO
     Indication: Immune system disorder
     Dosage: 300 MILLIGRAM, 1X/2WKS
     Route: 058
     Dates: start: 20190218
  7. TAKHZYRO [Suspect]
     Active Substance: LANADELUMAB-FLYO
     Dosage: 300 MILLIGRAM,Q4WEEKS
     Route: 058
     Dates: start: 20190218
  8. PROSCAR [Concomitant]
     Active Substance: FINASTERIDE
     Indication: Product used for unknown indication
  9. ZOLOFT [Concomitant]
     Active Substance: SERTRALINE HYDROCHLORIDE
     Indication: Product used for unknown indication
  10. ASPIRIN [Concomitant]
     Active Substance: ASPIRIN
     Indication: Product used for unknown indication
  11. DRONABINOL [Concomitant]
     Active Substance: DRONABINOL
     Indication: Product used for unknown indication
  12. RANITIDINE [Concomitant]
     Active Substance: RANITIDINE
     Indication: Product used for unknown indication
  13. SENNA-S [DOCUSATE SODIUM;SENNA ALEXANDRINA] [Concomitant]
     Indication: Product used for unknown indication
  14. MIRALAX [Concomitant]
     Active Substance: POLYETHYLENE GLYCOL 3350
     Indication: Product used for unknown indication
  15. ASCORBIC ACID [Concomitant]
     Active Substance: ASCORBIC ACID
     Indication: Product used for unknown indication
  16. VITAMIN D3 [Concomitant]
     Active Substance: CHOLECALCIFEROL
     Indication: Product used for unknown indication
  17. VITAMINS NOS [Concomitant]
     Active Substance: VITAMINS
     Indication: Product used for unknown indication
  18. CALCIUM CARBONATE\CHOLECALCIFEROL [Concomitant]
     Active Substance: CALCIUM CARBONATE\CHOLECALCIFEROL
     Indication: Product used for unknown indication
  19. TRAMADOL [Concomitant]
     Active Substance: TRAMADOL
     Indication: Product used for unknown indication
  20. TOPROL XL [Concomitant]
     Active Substance: METOPROLOL SUCCINATE
     Indication: Product used for unknown indication
  21. VITAMINS [Concomitant]
     Active Substance: VITAMINS

REACTIONS (3)
  - Back pain [Unknown]
  - Prostate cancer [Unknown]
  - Intentional product use issue [Unknown]
